FAERS Safety Report 13511199 (Version 3)
Quarter: 2017Q3

REPORT INFORMATION
  Report Type: Spontaneous
  Country: SE (occurrence: SE)
  Receive Date: 20170503
  Receipt Date: 20170718
  Transmission Date: 20171127
  Serious: Yes (Other)
  Sender: FDA-Public Use
  Company Number: SE-ABBVIE-17P-150-1963636-00

PATIENT
  Age: 7 Year
  Sex: Male

DRUGS (2)
  1. ERGENYL [Suspect]
     Active Substance: VALPROIC ACID
     Indication: PRODUCT USED FOR UNKNOWN INDICATION
     Dosage: RETARD
     Route: 065
  2. ERGENYL [Suspect]
     Active Substance: VALPROIC ACID
     Route: 065

REACTIONS (2)
  - Drug ineffective [Unknown]
  - Seizure [Recovering/Resolving]
